FAERS Safety Report 6328101-1 (Version None)
Quarter: 2009Q3

REPORT INFORMATION
  Report Type: 
  Country: None (occurrence: None)
  Receive Date: 20090825
  Receipt Date: 20080821
  Transmission Date: 20100115
  Serious: No
  Sender: FDA-Public Use
  Company Number: US-ABBOTT-08P-163-0472047-00

PATIENT
  Sex: Female
  Weight: 72.64 kg

DRUGS (3)
  1. SYNTHROID [Suspect]
     Indication: HYPOTHYROIDISM
     Route: 048
     Dates: start: 20070101, end: 20080101
  2. SYNTHROID [Suspect]
     Route: 048
     Dates: start: 20080401
  3. SYNTHROID [Suspect]
     Route: 048
     Dates: start: 19910101, end: 20070101

REACTIONS (3)
  - DRUG HYPERSENSITIVITY [None]
  - FATIGUE [None]
  - TREMOR [None]
